FAERS Safety Report 25770224 (Version 1)
Quarter: 2025Q3

REPORT INFORMATION
  Report Type: Spontaneous
  Country: US (occurrence: US)
  Receive Date: 20250907
  Receipt Date: 20250907
  Transmission Date: 20251020
  Serious: Yes (Hospitalization)
  Sender: HETERO
  Company Number: US-HETERO-HET2025US05206

PATIENT
  Age: 37 Year
  Sex: Female

DRUGS (1)
  1. TRIENTINE HYDROCHLORIDE [Suspect]
     Active Substance: TRIENTINE HYDROCHLORIDE
     Indication: Hepato-lenticular degeneration
     Route: 065

REACTIONS (1)
  - Enteritis [Recovered/Resolved]
